FAERS Safety Report 7542324-5 (Version None)
Quarter: 2011Q2

REPORT INFORMATION
  Report Type: 
  Country: None (occurrence: None)
  Receive Date: 20110613
  Receipt Date: 20110601
  Transmission Date: 20111010
  Serious: Yes (Other)
  Sender: FDA-Public Use
  Company Number: US-AMGEN-KDL385333

PATIENT
  Age: 74 Year
  Sex: Male
  Weight: 74.7 kg

DRUGS (5)
  1. NPLATE [Suspect]
     Dates: start: 20090406
  2. ATENOLOL [Concomitant]
     Dosage: UNK UNK, UNK
     Route: 048
     Dates: start: 20100101
  3. NPLATE [Suspect]
     Indication: IDIOPATHIC THROMBOCYTOPENIC PURPURA
     Dosage: UNK UNK, UNK
     Dates: start: 20090406
  4. NPLATE [Suspect]
     Dosage: UNK UNK, Q2WK
     Dates: start: 20100222
  5. RITUXIMAB [Concomitant]
     Dosage: UNK UNK, UNK
     Dates: start: 20100201

REACTIONS (17)
  - BLOOD PRESSURE INCREASED [None]
  - RASH PRURITIC [None]
  - HEART RATE INCREASED [None]
  - MALAISE [None]
  - FEELING ABNORMAL [None]
  - FATIGUE [None]
  - PETECHIAE [None]
  - PALPITATIONS [None]
  - DYSPNOEA EXERTIONAL [None]
  - ASTHENIA [None]
  - MUSCULAR WEAKNESS [None]
  - URTICARIA [None]
  - SKIN INFECTION [None]
  - PLATELET COUNT DECREASED [None]
  - OEDEMA PERIPHERAL [None]
  - PLATELET COUNT ABNORMAL [None]
  - HEADACHE [None]
